FAERS Safety Report 20680988 (Version 3)
Quarter: 2022Q2

REPORT INFORMATION
  Report Type: Spontaneous
  Country: US (occurrence: US)
  Receive Date: 20220406
  Receipt Date: 20220627
  Transmission Date: 20220721
  Serious: Yes (Other)
  Sender: FDA-Public Use
  Company Number: US-PFIZER INC-202200474194

PATIENT
  Age: 28 Year
  Sex: Female

DRUGS (1)
  1. XELJANZ [Suspect]
     Active Substance: TOFACITINIB CITRATE
     Indication: Colitis ulcerative
     Dosage: 5 MG, 2X/DAY
     Route: 048
     Dates: start: 202006

REACTIONS (9)
  - Rheumatoid arthritis [Unknown]
  - Pain in extremity [Unknown]
  - Back pain [Unknown]
  - Skin disorder [Unknown]
  - Arthralgia [Unknown]
  - Pyrexia [Unknown]
  - Illness [Unknown]
  - Nasopharyngitis [Unknown]
  - Bowel movement irregularity [Recovering/Resolving]

NARRATIVE: CASE EVENT DATE: 20201201
